FAERS Safety Report 8524534-3 (Version None)
Quarter: 2012Q3

REPORT INFORMATION
  Report Type: 
  Country: None (occurrence: None)
  Receive Date: 20120720
  Receipt Date: 20120706
  Transmission Date: 20120928
  Serious: Yes (Other)
  Sender: FDA-Public Use
  Company Number: GB-MYLANLABS-2012S1013725

PATIENT
  Sex: Female

DRUGS (1)
  1. LETROZOLE [Suspect]
     Indication: PRODUCT USED FOR UNKNOWN INDICATION
     Route: 048

REACTIONS (7)
  - COORDINATION ABNORMAL [None]
  - HEADACHE [None]
  - DRY MOUTH [None]
  - AMNESIA [None]
  - MYALGIA [None]
  - FATIGUE [None]
  - BLINDNESS [None]
